FAERS Safety Report 21054758 (Version 3)
Quarter: 2022Q3

REPORT INFORMATION
  Report Type: Spontaneous
  Country: US (occurrence: US)
  Receive Date: 20220707
  Receipt Date: 20220901
  Transmission Date: 20221026
  Serious: Yes (Other)
  Sender: FDA-Public Use
  Company Number: US-PFIZER INC-202200922594

PATIENT
  Age: 73 Year
  Sex: Female

DRUGS (20)
  1. IBRANCE [Suspect]
     Active Substance: PALBOCICLIB
     Indication: Breast cancer female
     Dosage: 100 MG, CYCLIC (TAKE 1 TABLET (100 MG) DAILY FOR 21 DAYS FOLLOWED BY 7 DAYS OFF)
     Dates: start: 20220603
  2. TYLENOL ARTHRITIS PAIN [Concomitant]
     Active Substance: ACETAMINOPHEN
     Dosage: 650 MG
  3. IMODIUM [Concomitant]
     Active Substance: LOPERAMIDE HYDROCHLORIDE
     Dosage: 2 MG
  4. CLARITIN-D NOS [Concomitant]
     Active Substance: LORATADINE\PSEUDOEPHEDRINE SULFATE
     Dosage: UNK
  5. MINERALS\VITAMINS [Concomitant]
     Active Substance: MINERALS\VITAMINS
     Dosage: UNK
  6. OMEGA 3-6-9 [BORAGO OFFICINALIS OIL;FISH OIL;LINUM USITATISSIMUM OIL] [Concomitant]
     Dosage: UNK
  7. EXEMESTANE [Concomitant]
     Active Substance: EXEMESTANE
     Dosage: 25 MG
  8. POTASSIUM CHLORIDE\RIBOFLAVIN 5^-PHOSPHATE SODIUM [Concomitant]
     Active Substance: POTASSIUM CHLORIDE\RIBOFLAVIN 5^-PHOSPHATE SODIUM
     Dosage: 10 MEQ
  9. OXYBUTYNIN CHLORIDE [Concomitant]
     Active Substance: OXYBUTYNIN CHLORIDE
     Dosage: 5 MG
  10. EZETIMIBE [Concomitant]
     Active Substance: EZETIMIBE
     Dosage: 10 MG
  11. ALLOPURINOL [Concomitant]
     Active Substance: ALLOPURINOL
     Dosage: 100 MG
  12. ONDANSETROM [ONDANSETRON HYDROCHLORIDE] [Concomitant]
     Dosage: 8 MG
  13. SIMVASTATIN [Concomitant]
     Active Substance: SIMVASTATIN
     Dosage: 20 MG
  14. OSTEO BI-FLEX [CHONDROITIN SULFATE;GLUCOSAMINE HYDROCHLORIDE] [Concomitant]
     Dosage: UNK (CHONDROITIN SULFATE 200 MG / GLUCOSAMINE HYDROCHLORIDE 250MG)
  15. ZESTORETIC [Concomitant]
     Active Substance: HYDROCHLOROTHIAZIDE\LISINOPRIL
     Dosage: UNK (LISINOPRIL 10 MG + HYDROCHLOROTHIAZIDE 12.5 MG)
  16. XGEVA [Concomitant]
     Active Substance: DENOSUMAB
     Dosage: UNK (120 MG/1.7 VIAL)
  17. CALCIUM [Concomitant]
     Active Substance: CALCIUM
     Dosage: 600 MG
  18. OMEPRAZOLE [Concomitant]
     Active Substance: OMEPRAZOLE
     Dosage: 10 MG
  19. EYLEA [Concomitant]
     Active Substance: AFLIBERCEPT
     Dosage: UNK (2MG/0.05ML SYRINGE)
  20. VITAMIN D3 [Concomitant]
     Active Substance: CHOLECALCIFEROL
     Dosage: UNK

REACTIONS (16)
  - Renal impairment [Unknown]
  - Blood magnesium decreased [Unknown]
  - Blood potassium decreased [Unknown]
  - Increased tendency to bruise [Unknown]
  - Back pain [Recovering/Resolving]
  - Oropharyngeal pain [Recovering/Resolving]
  - White blood cell count decreased [Recovering/Resolving]
  - Red blood cell count decreased [Recovering/Resolving]
  - Diarrhoea [Not Recovered/Not Resolved]
  - Haemoglobin decreased [Recovering/Resolving]
  - Haematocrit decreased [Recovering/Resolving]
  - Tumour marker increased [Unknown]
  - Constipation [Unknown]
  - Dental caries [Unknown]
  - Oral pain [Unknown]
  - Dental plaque [Unknown]

NARRATIVE: CASE EVENT DATE: 20220701
